FAERS Safety Report 14681092 (Version 3)
Quarter: 2018Q2

REPORT INFORMATION
  Report Type: Report from Study
  Country: TW (occurrence: TW)
  Receive Date: 20180326
  Receipt Date: 20180625
  Transmission Date: 20180711
  Serious: Yes (Death, Hospitalization, Other)
  Sender: FDA-Public Use
  Company Number: TW-INCYTE CORPORATION-2018IN002779

PATIENT

DRUGS (1)
  1. JAKAVI [Suspect]
     Active Substance: RUXOLITINIB
     Indication: MYELOFIBROSIS
     Dosage: UNK UNK, BID
     Route: 048

REACTIONS (4)
  - Red blood cell count decreased [Fatal]
  - Pleural effusion [Unknown]
  - Haemoglobin decreased [Unknown]
  - Platelet count decreased [Fatal]

NARRATIVE: CASE EVENT DATE: 201805
